FAERS Safety Report 10407316 (Version 2)
Quarter: 2014Q3

REPORT INFORMATION
  Report Type: Report from Study
  Country: US (occurrence: US)
  Receive Date: 20140825
  Receipt Date: 20140825
  Transmission Date: 20150326
  Serious: Yes (Other)
  Sender: FDA-Public Use
  Company Number: PHEH2013US010245

PATIENT
  Age: 55 Year
  Sex: Female

DRUGS (7)
  1. MULTI-VIT [Suspect]
     Active Substance: VITAMINS
     Dosage: UNK UKN, UNK
  2. ESTRADIOL. [Concomitant]
     Active Substance: ESTRADIOL
     Indication: HORMONE REPLACEMENT THERAPY
     Dosage: 2 MG, DAILY
     Route: 048
  3. GLEEVEC [Suspect]
     Active Substance: IMATINIB MESYLATE
     Indication: CHRONIC MYELOID LEUKAEMIA
     Dosage: 400 MG, DAILY
     Route: 048
     Dates: start: 20121012, end: 20130418
  4. ESTROGEN [Suspect]
     Active Substance: ESTRONE\SUS SCROFA OVARY
     Indication: MENOPAUSE
     Dosage: UNK UKN, UNK
  5. IMITREX [Suspect]
     Active Substance: SUMATRIPTAN\SUMATRIPTAN SUCCINATE
     Indication: MIGRAINE
     Dosage: UNK UKN, UNK
  6. ONDANSETRON [Concomitant]
     Active Substance: ONDANSETRON
     Indication: NAUSEA
     Dosage: 4 MG, UNK
     Route: 048
  7. ALPRAZOLAM. [Concomitant]
     Active Substance: ALPRAZOLAM
     Indication: ANXIETY
     Dosage: 0.5 MG, DAILY
     Route: 048

REACTIONS (19)
  - Visual acuity reduced [Recovered/Resolved]
  - Confusional state [Unknown]
  - Ocular hyperaemia [Recovered/Resolved]
  - Muscle spasms [Recovered/Resolved]
  - Night sweats [Not Recovered/Not Resolved]
  - Lacrimation increased [Recovered/Resolved]
  - Hypersensitivity [Unknown]
  - Hyperhidrosis [Not Recovered/Not Resolved]
  - Electrocardiogram QT prolonged [Unknown]
  - Cold sweat [Unknown]
  - Cytogenetic analysis abnormal [Unknown]
  - Nausea [Unknown]
  - Eye irritation [Recovered/Resolved]
  - Palpitations [Unknown]
  - Fear of death [Unknown]
  - Eye swelling [Recovered/Resolved]
  - No therapeutic response [Recovering/Resolving]
  - Fatigue [Unknown]
  - Alopecia [Unknown]

NARRATIVE: CASE EVENT DATE: 201210
